FAERS Safety Report 6249104-1 (Version None)
Quarter: 2009Q2

REPORT INFORMATION
  Report Type: 
  Country: None (occurrence: None)
  Receive Date: 20090624
  Receipt Date: 20090609
  Transmission Date: 20091009
  Serious: Yes (Hospitalization)
  Sender: FDA-Public Use
  Company Number: IDA-00218

PATIENT
  Age: 76 Year
  Sex: Male

DRUGS (8)
  1. AVLOCARDYL (PROPRANOLOL) STRENGTH: 40MG /40MG [Suspect]
     Dosage: 40 MG DAILY /20 MG, ORAL FORMULATION: TABLET/ORAL
     Route: 048
     Dates: end: 20090430
  2. AVLOCARDYL (PROPRANOLOL) STRENGTH: 40MG /40MG [Suspect]
     Dosage: 40 MG DAILY /20 MG, ORAL FORMULATION: TABLET/ORAL
     Route: 048
     Dates: start: 20090430, end: 20090505
  3. ALDALIX (FUROSEMIDE, SPIRONOLACTONE) STRENGTH: 1DF [Suspect]
     Dosage: 1  DF DAILY, TABLET
     Dates: end: 20090501
  4. CITALOPRAM HYDROBROMIDE [Suspect]
     Indication: CLAUSTROPHOBIA
     Dosage: 20 MG DAILY ORAL
     Route: 048
     Dates: end: 20090430
  5. CITALOPRAM HYDROBROMIDE [Suspect]
     Indication: CLAUSTROPHOBIA
     Dosage: 20 MG DAILY ORAL
     Route: 048
     Dates: end: 20090501
  6. NO MATCH (NO MATCH) [Concomitant]
  7. CORDARONE [Concomitant]
  8. PREVISCAN (FLUINDIONE) [Concomitant]

REACTIONS (6)
  - ASTHENIA [None]
  - BALANCE DISORDER [None]
  - BLOOD CREATININE INCREASED [None]
  - CYTOLYTIC HEPATITIS [None]
  - INTERNATIONAL NORMALISED RATIO INCREASED [None]
  - ORTHOSTATIC HYPOTENSION [None]
